FAERS Safety Report 15147288 (Version 1)
Quarter: 2018Q3

REPORT INFORMATION
  Report Type: Spontaneous
  Country: GB (occurrence: GB)
  Receive Date: 20180716
  Receipt Date: 20180716
  Transmission Date: 20181010
  Serious: Yes (Other)
  Sender: FDA-Public Use
  Company Number: GB-TEVA-2018-GB-925954

PATIENT
  Age: 27 Year
  Sex: Female
  Weight: 72 kg

DRUGS (3)
  1. LIDOCAINE. [Suspect]
     Active Substance: LIDOCAINE
     Route: 065
     Dates: start: 20180607
  2. NEXPLANON [Concomitant]
     Active Substance: ETONOGESTREL
     Dosage: USE AS DIRECTED
     Route: 065
     Dates: start: 20180529
  3. DESOGESTREL [Concomitant]
     Active Substance: DESOGESTREL
     Dosage: 1 DOSAGE FORMS DAILY; NO BREAK
     Route: 065
     Dates: start: 20180529

REACTIONS (2)
  - Injection site reaction [Recovering/Resolving]
  - Injection site erythema [Recovering/Resolving]

NARRATIVE: CASE EVENT DATE: 20180607
